FAERS Safety Report 18681491 (Version 1)
Quarter: 2020Q4

REPORT INFORMATION
  Report Type: Spontaneous
  Country: US (occurrence: US)
  Receive Date: 20201228
  Receipt Date: 20201228
  Transmission Date: 20210114
  Serious: Yes (Life-Threatening, Hospitalization, Other)
  Sender: FDA-Public Use
  Company Number: None

PATIENT
  Age: 76 Year
  Sex: Male
  Weight: 74 kg

DRUGS (1)
  1. WARFARIN (WARFARIN NA (GOLDEN STATE) 5MG TAB) [Suspect]
     Active Substance: WARFARIN SODIUM
     Indication: ATRIAL FIBRILLATION
     Route: 048
     Dates: start: 20140502, end: 20201203

REACTIONS (14)
  - Iron deficiency [None]
  - Haemorrhage [None]
  - Dizziness [None]
  - Platelet count decreased [None]
  - Hypotension [None]
  - Renal failure [None]
  - Chest pain [None]
  - Large intestinal ulcer [None]
  - International normalised ratio increased [None]
  - Bradycardia [None]
  - Atrial fibrillation [None]
  - Anaemia [None]
  - Pulseless electrical activity [None]
  - Anticoagulation drug level above therapeutic [None]

NARRATIVE: CASE EVENT DATE: 20201203
